FAERS Safety Report 9451560 (Version 2)
Quarter: 2013Q3

REPORT INFORMATION
  Report Type: Spontaneous
  Country: US (occurrence: US)
  Receive Date: 20130811
  Receipt Date: 20130903
  Transmission Date: 20140515
  Serious: Yes (Hospitalization, Other)
  Sender: FDA-Public Use
  Company Number: US-SANOFI-AVENTIS-2013SA079081

PATIENT
  Age: 77 Year
  Sex: Female
  Weight: 58 kg

DRUGS (6)
  1. PLAVIX [Suspect]
     Indication: CEREBROVASCULAR ACCIDENT
     Route: 048
     Dates: start: 2009
  2. PLAVIX [Suspect]
     Indication: THROMBOSIS PROPHYLAXIS
     Route: 048
     Dates: start: 2009
  3. LEXAPRO [Suspect]
     Route: 065
  4. XANAX [Suspect]
     Route: 065
  5. PRILOSEC [Concomitant]
  6. OXYGEN [Concomitant]
     Route: 065

REACTIONS (6)
  - Cerebrovascular accident [Unknown]
  - Polyp [Unknown]
  - Lung disorder [Unknown]
  - Loss of consciousness [Unknown]
  - Fall [Unknown]
  - Contusion [Not Recovered/Not Resolved]
